FAERS Safety Report 17915173 (Version 1)
Quarter: 2020Q2

REPORT INFORMATION
  Report Type: Report from Study
  Country: None (occurrence: IL)
  Receive Date: 20200618
  Receipt Date: 20200618
  Transmission Date: 20200714
  Serious: Yes (Hospitalization)
  Sender: FDA-Public Use
  Company Number: IL-ABBVIE-16K-082-1587923-00

PATIENT
  Sex: Female

DRUGS (3)
  1. FERINJECT [Concomitant]
     Active Substance: FERRIC CARBOXYMALTOSE
     Indication: ANAEMIA
  2. HUMIRA [Suspect]
     Active Substance: ADALIMUMAB
     Indication: COLITIS ULCERATIVE
     Route: 058
     Dates: start: 20141005
  3. HUMIRA [Suspect]
     Active Substance: ADALIMUMAB
     Indication: COLITIS ULCERATIVE
     Route: 058
     Dates: end: 20160901

REACTIONS (10)
  - Renal abscess [Recovered/Resolved]
  - Fatigue [Recovered/Resolved]
  - Injection site inflammation [Recovered/Resolved]
  - Platelet disorder [Recovered/Resolved]
  - Injection site pain [Not Recovered/Not Resolved]
  - Injection site haematoma [Recovered/Resolved]
  - Injection site induration [Not Recovered/Not Resolved]
  - Malaise [Recovered/Resolved]
  - Injection site swelling [Recovered/Resolved]
  - Injection site erythema [Not Recovered/Not Resolved]

NARRATIVE: CASE EVENT DATE: 2016
